FAERS Safety Report 9550764 (Version 4)
Quarter: 2015Q1

REPORT INFORMATION
  Report Type: Spontaneous
  Country: US (occurrence: US)
  Receive Date: 20130924
  Receipt Date: 20150325
  Transmission Date: 20150721
  Serious: Yes (Hospitalization, Other)
  Sender: FDA-Public Use
  Company Number: US-SANOFI-AVENTIS-2013SA047899

PATIENT
  Age: 59 Year
  Sex: Female

DRUGS (2)
  1. AUBAGIO [Suspect]
     Active Substance: TERIFLUNOMIDE
     Indication: MULTIPLE SCLEROSIS
     Route: 048
     Dates: start: 20130317
  2. AUBAGIO [Suspect]
     Active Substance: TERIFLUNOMIDE
     Indication: MULTIPLE SCLEROSIS
     Route: 048

REACTIONS (22)
  - Anosmia [Recovering/Resolving]
  - Nodule [Unknown]
  - Transient acantholytic dermatosis [Not Recovered/Not Resolved]
  - Viral infection [Recovered/Resolved]
  - Rash [Not Recovered/Not Resolved]
  - White blood cell count decreased [Recovered/Resolved]
  - Headache [Recovered/Resolved]
  - Diarrhoea [Recovered/Resolved]
  - Pruritus [Not Recovered/Not Resolved]
  - Sinusitis [Recovering/Resolving]
  - Alopecia [Not Recovered/Not Resolved]
  - Swelling [Unknown]
  - Pain [Unknown]
  - Blood pressure increased [Recovered/Resolved]
  - Vomiting [Recovered/Resolved]
  - Ageusia [Recovering/Resolving]
  - Nausea [Recovered/Resolved]
  - Blister [Not Recovered/Not Resolved]
  - Pruritus [Not Recovered/Not Resolved]
  - Dehydration [Recovered/Resolved]
  - Kidney infection [Recovered/Resolved]
  - Mass [Not Recovered/Not Resolved]

NARRATIVE: CASE EVENT DATE: 20130508
